FAERS Safety Report 5551274-5 (Version None)
Quarter: 2007Q4

REPORT INFORMATION
  Report Type: 
  Country: None (occurrence: None)
  Receive Date: 20071210
  Receipt Date: 20071126
  Transmission Date: 20080405
  Serious: Yes (Death, Other)
  Sender: FDA-Public Use
  Company Number: 2007-03630

PATIENT
  Age: 80 Year
  Sex: Female
  Weight: 34 kg

DRUGS (30)
  1. VELCADE [Suspect]
     Indication: MULTIPLE MYELOMA
     Dosage: 1.40 MG,  INTRAVENOUS
     Route: 042
     Dates: start: 20070920, end: 20071003
  2. DEXAMETHASONE TAB [Concomitant]
  3. FOSAMAX [Concomitant]
  4. ALDACTONE [Concomitant]
  5. DIFLUCAN [Concomitant]
  6. TENORMIN [Concomitant]
  7. ASPIRIN [Concomitant]
  8. BAKTAR (SULFAMETHOXAZOLE, TRIMETHOPRIM) [Concomitant]
  9. PROTECADIN /JPN/ (LAFUTIDINE) [Concomitant]
  10. TORSEMIDE [Concomitant]
  11. LENDORMIN (BORTIZOLAM) [Concomitant]
  12. ALLOPURINOL [Concomitant]
  13. CALCIUM LACTATE (CALCIUM LACTATE) [Concomitant]
  14. SIGMART (NICORANDIL) [Concomitant]
  15. MAGNESIUM OXIDE (MAGNESIUM OXIDE) [Concomitant]
  16. CALONAL (PARACETAMOL) [Concomitant]
  17. POTASSIUM CHLORIDE [Concomitant]
  18. MAGNESIUM SULFATE [Concomitant]
  19. HEPARIN SODIUM [Concomitant]
  20. MORPHINE [Concomitant]
  21. SOLU-MEDROL [Concomitant]
  22. LASIX [Concomitant]
  23. CHLOR-TRIMETON [Concomitant]
  24. SOLU-CORTEF (HYDROCORTISONE SODIUM SICCINATE) [Concomitant]
  25. FIRSTCIN (CEFOZOPRAN HYDROCHLORIDE) [Concomitant]
  26. NITOROL (ISOSORIBDE DINITRATE) [Concomitant]
  27. MILLISROL (GLYCERYL TRINITRATE) [Concomitant]
  28. MEROPEN (MEROPENEM) [Concomitant]
  29. RED BLOOD CELLS [Concomitant]
  30. PLATELETS [Concomitant]

REACTIONS (5)
  - CARDIAC FAILURE [None]
  - HAEMOGLOBIN DECREASED [None]
  - MALIGNANT NEOPLASM PROGRESSION [None]
  - MULTIPLE MYELOMA [None]
  - PLATELET COUNT DECREASED [None]
